FAERS Safety Report 26133206 (Version 1)
Quarter: 2025Q4

REPORT INFORMATION
  Report Type: Spontaneous
  Country: GB (occurrence: GB)
  Receive Date: 20251209
  Receipt Date: 20251209
  Transmission Date: 20260117
  Serious: Yes (Life-Threatening, Other)
  Sender: TEVA
  Company Number: GB-UKI-GBR/2025/07/009706

PATIENT
  Sex: Female

DRUGS (1)
  1. PREGABALIN [Suspect]
     Active Substance: PREGABALIN
     Indication: Product used for unknown indication
     Dosage: PREGABALIN_DRR_GB
     Route: 065

REACTIONS (6)
  - Lipase increased [Unknown]
  - Feeling abnormal [Unknown]
  - Liver injury [Unknown]
  - Back pain [Recovered/Resolved]
  - Pancreatitis acute [Unknown]
  - Near death experience [Unknown]

NARRATIVE: CASE EVENT DATE: 20250219
